FAERS Safety Report 24712339 (Version 2)
Quarter: 2024Q4

REPORT INFORMATION
  Report Type: Spontaneous
  Country: US (occurrence: US)
  Receive Date: 20241209
  Receipt Date: 20241216
  Transmission Date: 20250114
  Serious: No
  Sender: BRISTOL-MYERS SQUIBB COMPANY
  Company Number: US-BRISTOL-MYERS SQUIBB COMPANY-2024-191119

PATIENT
  Age: 79 Year
  Sex: Female

DRUGS (1)
  1. LENALIDOMIDE [Suspect]
     Active Substance: LENALIDOMIDE
     Indication: Iron deficiency
     Route: 048
     Dates: start: 20241205

REACTIONS (6)
  - Sinusitis [Not Recovered/Not Resolved]
  - Headache [Not Recovered/Not Resolved]
  - Epistaxis [Not Recovered/Not Resolved]
  - Off label use [Unknown]
  - Dizziness [Not Recovered/Not Resolved]
  - Malaise [Not Recovered/Not Resolved]
